FAERS Safety Report 8182883-5 (Version None)
Quarter: 2012Q1

REPORT INFORMATION
  Report Type: 
  Country: None (occurrence: None)
  Receive Date: 20120305
  Receipt Date: 20120229
  Transmission Date: 20120608
  Serious: Yes (Death)
  Sender: FDA-Public Use
  Company Number: MX-BRISTOL-MYERS SQUIBB COMPANY-16425969

PATIENT
  Age: 46 Year
  Sex: Female

DRUGS (5)
  1. METFORMIN HCL [Suspect]
     Dosage: 1DF:1 TABS OF 850 MG
     Route: 048
  2. ONGLYZA [Suspect]
     Route: 048
     Dates: start: 20100501
  3. ASPIRIN [Suspect]
     Dosage: 1DF:1 TABS OF 100MG
     Route: 048
  4. ENALAPRIL MALEATE [Suspect]
     Dosage: 1DF:1 TABS OF 10MG
     Route: 048
  5. MULTI-VITAMIN [Suspect]

REACTIONS (1)
  - ADENOCARCINOMA PANCREAS [None]
